FAERS Safety Report 5087529-0 (Version None)
Quarter: 2006Q3

REPORT INFORMATION
  Report Type: 
  Country: None (occurrence: None)
  Receive Date: 20060824
  Receipt Date: 20060616
  Transmission Date: 20061208
  Serious: Yes (Hospitalization, Other)
  Sender: FDA-Public Use
  Company Number: J200601808

PATIENT
  Age: 7 Year
  Sex: Male

DRUGS (3)
  1. SAWACILLIN [Suspect]
     Indication: UPPER RESPIRATORY TRACT INFLAMMATION
     Dosage: 250MG THREE TIMES PER DAY
     Route: 048
     Dates: start: 20060601, end: 20060606
  2. MUCOSOLVAN S (AMBROXOL) [Suspect]
     Indication: UPPER RESPIRATORY TRACT INFLAMMATION
     Dosage: 5MG THREE TIMES PER DAY
     Route: 048
     Dates: start: 20060601, end: 20060606
  3. EMPYNASE [Concomitant]
     Indication: UPPER RESPIRATORY TRACT INFLAMMATION
     Route: 048
     Dates: start: 20060601, end: 20060606

REACTIONS (5)
  - DRUG HYPERSENSITIVITY [None]
  - ERYTHEMA [None]
  - LYMPHOCYTE STIMULATION TEST POSITIVE [None]
  - RASH [None]
  - VIRAL INFECTION [None]
